FAERS Safety Report 18297153 (Version 2)
Quarter: 2020Q4

REPORT INFORMATION
  Report Type: Report from Study
  Country: CA (occurrence: CA)
  Receive Date: 20200922
  Receipt Date: 20201202
  Transmission Date: 20210113
  Serious: Yes (Other)
  Sender: FDA-Public Use
  Company Number: CA-JNJFOC-20200827001

PATIENT
  Age: 38 Year
  Sex: Male

DRUGS (2)
  1. REMICADE [Suspect]
     Active Substance: INFLIXIMAB
     Indication: COLITIS ULCERATIVE
     Dosage: KDM56011 THREE DOSES
     Route: 042
     Dates: start: 20190816
  2. SOLU-CORTEF [Concomitant]
     Active Substance: HYDROCORTISONE SODIUM SUCCINATE
     Indication: PREMEDICATION
     Route: 042

REACTIONS (8)
  - Flushing [Unknown]
  - Infusion related reaction [Unknown]
  - Vomiting [Unknown]
  - Cold sweat [Unknown]
  - Nausea [Unknown]
  - Drug ineffective [Unknown]
  - Dyspnoea [Unknown]
  - Colitis ulcerative [Unknown]

NARRATIVE: CASE EVENT DATE: 202008
